FAERS Safety Report 8690830 (Version 6)
Quarter: 2013Q2

REPORT INFORMATION
  Report Type: Spontaneous
  Country: US (occurrence: US)
  Receive Date: 20120729
  Receipt Date: 20130503
  Transmission Date: 20140414
  Serious: Yes (Hospitalization, Disabling, Other)
  Sender: FDA-Public Use
  Company Number: US-009507513-1207USA005660

PATIENT
  Sex: Female

DRUGS (6)
  1. FOSAMAX [Suspect]
     Indication: OSTEOPOROSIS
     Dosage: UNK
     Route: 048
     Dates: end: 2006
  2. FOSAMAX [Suspect]
     Dosage: 70 MG, QW
     Route: 048
     Dates: start: 20010525, end: 20070118
  3. FOSAMAX [Suspect]
     Dosage: 10 MG, QD
     Route: 048
     Dates: start: 19951001, end: 20010510
  4. ZETIA [Concomitant]
     Indication: HYPERLIPIDAEMIA
  5. LIPITOR [Concomitant]
     Indication: HYPERLIPIDAEMIA
  6. NORVASC [Concomitant]
     Indication: HYPERTENSION

REACTIONS (26)
  - Femur fracture [Unknown]
  - Open reduction of fracture [Unknown]
  - Anaemia postoperative [Unknown]
  - Spinal decompression [Unknown]
  - Femur fracture [Not Recovered/Not Resolved]
  - Low turnover osteopathy [Not Recovered/Not Resolved]
  - Sciatica [Unknown]
  - Ankle fracture [Unknown]
  - Electrocardiogram change [Unknown]
  - Incision site vesicles [Unknown]
  - Fat necrosis [Unknown]
  - Osteoarthritis [Unknown]
  - Atrioventricular block first degree [Unknown]
  - Lumbar spinal stenosis [Unknown]
  - Intervertebral disc protrusion [Unknown]
  - Depression [Unknown]
  - Nerve root compression [Unknown]
  - Osteopenia [Unknown]
  - Spinal osteoarthritis [Unknown]
  - Ankle fracture [Unknown]
  - Ligament sprain [Unknown]
  - Tooth extraction [Not Recovered/Not Resolved]
  - Dental caries [Unknown]
  - Loose tooth [Unknown]
  - Gastritis [Unknown]
  - Arthralgia [Unknown]
